FAERS Safety Report 8825300 (Version 2)
Quarter: 2012Q4

REPORT INFORMATION
  Report Type: 
  Country: TW (occurrence: TW)
  Receive Date: 20121004
  Receipt Date: 20121025
  Transmission Date: 20130627
  Serious: Yes (Death, Other)
  Sender: FDA-Public Use
  Company Number: TW-ACTELION-A-CH2012-72193

PATIENT
  Age: 38 Year
  Sex: Female

DRUGS (3)
  1. TRACLEER [Suspect]
     Indication: PULMONARY HYPERTENSION
     Dosage: UNK
     Route: 048
  2. THALIDOMIDE [Concomitant]
     Dosage: UNK
  3. THALIDOMIDE [Concomitant]
     Dosage: 50 mg, bid
     Route: 048

REACTIONS (5)
  - Hereditary haemorrhagic telangiectasia [Fatal]
  - Disease progression [Fatal]
  - Tachyarrhythmia [Unknown]
  - Oxygen saturation decreased [Unknown]
  - Melaena [Unknown]
